FAERS Safety Report 20719500 (Version 1)
Quarter: 2022Q2

REPORT INFORMATION
  Report Type: Spontaneous
  Country: US (occurrence: US)
  Receive Date: 20220418
  Receipt Date: 20220418
  Transmission Date: 20220721
  Serious: No
  Sender: FDA-Public Use
  Company Number: US-PFIZER INC-202101193268

PATIENT
  Age: 60 Year
  Sex: Male
  Weight: 99.773 kg

DRUGS (1)
  1. INLYTA [Suspect]
     Active Substance: AXITINIB
     Indication: Renal cancer
     Dosage: 5 MG, EVERY 12 HOURS
     Route: 048
     Dates: start: 20210817

REACTIONS (4)
  - Myalgia [Unknown]
  - Headache [Unknown]
  - Ear discomfort [Unknown]
  - Aphonia [Unknown]

NARRATIVE: CASE EVENT DATE: 20210101
